FAERS Safety Report 6817119-8 (Version None)
Quarter: 2010Q3

REPORT INFORMATION
  Report Type: 
  Country: None (occurrence: None)
  Receive Date: 20100706
  Receipt Date: 20100622
  Transmission Date: 20110219
  Serious: Yes (Hospitalization)
  Sender: FDA-Public Use
  Company Number: PHHY2010NL40538

PATIENT

DRUGS (6)
  1. ZOMETA [Suspect]
     Dosage: 4 MG/5 ML
     Route: 042
     Dates: start: 20100201
  2. ZOMETA [Suspect]
     Dosage: 4 MG/5 ML
     Route: 042
     Dates: start: 20100301
  3. ZOMETA [Suspect]
     Dosage: 4 MG/5 ML
     Route: 042
     Dates: start: 20100329
  4. ZOMETA [Suspect]
     Dosage: 4 MG/5 ML
     Route: 042
     Dates: start: 20100426
  5. ZOMETA [Suspect]
     Dosage: 4 MG/5 ML
     Route: 042
     Dates: start: 20100525
  6. ZOMETA [Suspect]
     Dosage: 4 MG/5 ML
     Route: 042
     Dates: start: 20100621

REACTIONS (2)
  - DEHYDRATION [None]
  - PULMONARY EMBOLISM [None]
